FAERS Safety Report 10302010 (Version 1)
Quarter: 2014Q3

REPORT INFORMATION
  Report Type: Spontaneous
  Country: US (occurrence: None)
  Receive Date: 20140710
  Receipt Date: 20140710
  Transmission Date: 20150326
  Serious: Yes (Hospitalization, Disabling)
  Sender: FDA-Public Use
  Company Number: None

PATIENT
  Age: 28 Year
  Sex: Male
  Weight: 99.3 kg

DRUGS (11)
  1. EMTRICITABINE/TENOFOVIR DISOPROXIL FUMARATE [Suspect]
     Active Substance: EMTRICITABINE\TENOFOVIR DISOPROXIL
     Indication: PROPHYLAXIS AGAINST HIV INFECTION
     Dosage: 1 TABLET, ONCE DAILY, ORAL
     Route: 048
     Dates: start: 20140423, end: 20140619
  2. ECHINACEA [Concomitant]
     Active Substance: ECHINACEA, UNSPECIFIED
  3. VITAMIN D [Concomitant]
     Active Substance: CHOLECALCIFEROL
  4. MUSCLE MILK [Concomitant]
  5. VITAMIN C [Concomitant]
     Active Substance: ASCORBIC ACID
  6. WHEY PROTEIN ENRICHED IN CYSTINE BOVINE. [Concomitant]
     Active Substance: WHEY PROTEIN ENRICHED IN CYSTINE BOVINE
  7. PROTEIN POWDER [Concomitant]
  8. EXCEDRIN [Concomitant]
     Active Substance: ACETAMINOPHEN\ASPIRIN\CAFFEINE
  9. FORCE FACTOR TEST X [Concomitant]
  10. WHEY ISOLATE [Concomitant]
  11. VITAMIN B [Concomitant]
     Active Substance: VITAMIN B

REACTIONS (10)
  - Nausea [None]
  - Paraesthesia [None]
  - Pyrexia [None]
  - Migraine [None]
  - Asthenia [None]
  - Visual acuity reduced [None]
  - Hypoaesthesia [None]
  - Visual impairment [None]
  - Pain in extremity [None]
  - Hyperhidrosis [None]

NARRATIVE: CASE EVENT DATE: 20140619
